FAERS Safety Report 13181977 (Version 1)
Quarter: 2017Q1

REPORT INFORMATION
  Report Type: Spontaneous
  Country: US (occurrence: US)
  Receive Date: 20170202
  Receipt Date: 20170202
  Transmission Date: 20170428
  Serious: Yes (Other)
  Sender: FDA-Public Use
  Company Number: None

PATIENT
  Age: 37 Year
  Sex: Female
  Weight: 99 kg

DRUGS (10)
  1. FERROUS GLUCONATE [Concomitant]
     Active Substance: FERROUS GLUCONATE
  2. CHLORHEXIDINE GLUCONATE 4% STERIS CORP. [Suspect]
     Active Substance: CHLORHEXIDINE GLUCONATE
     Indication: PREOPERATIVE CARE
     Dosage: ?          QUANTITY:2 TIMES - N/A;OTHER FREQUENCY:BEDTIME + MORNING;?
     Route: 061
     Dates: start: 20161011, end: 20161011
  3. ASMANEX [Concomitant]
     Active Substance: MOMETASONE FUROATE
  4. CHLORHEXIDINE WIPES UNKNOWN [Suspect]
     Active Substance: CHLORHEXIDINE
     Indication: PREOPERATIVE CARE
     Dosage: ?          QUANTITY:6 WIPES;OTHER FREQUENCY:ONCE BEFORE SURGER;?
     Route: 061
     Dates: start: 20161011, end: 20161011
  5. DEXILANT [Concomitant]
     Active Substance: DEXLANSOPRAZOLE
  6. ALBUTEROL. [Concomitant]
     Active Substance: ALBUTEROL
  7. VITAMIN B12 [Concomitant]
     Active Substance: CYANOCOBALAMIN
  8. SINGULAIR [Concomitant]
     Active Substance: MONTELUKAST SODIUM
  9. PRENATAL VITAMINS [Concomitant]
     Active Substance: VITAMINS
  10. VITAMIN D [Concomitant]
     Active Substance: CHOLECALCIFEROL

REACTIONS (5)
  - Hypersensitivity [None]
  - Pruritus [None]
  - Lung disorder [None]
  - Burning sensation [None]
  - Urticaria [None]

NARRATIVE: CASE EVENT DATE: 20161011
